FAERS Safety Report 10563685 (Version 5)
Quarter: 2015Q4

REPORT INFORMATION
  Report Type: Report from Study
  Country: JP (occurrence: JP)
  Receive Date: 20141104
  Receipt Date: 20151217
  Transmission Date: 20160304
  Serious: Yes (Hospitalization)
  Sender: FDA-Public Use
  Company Number: JP-BAYER-2014-158276

PATIENT
  Age: 55 Year
  Sex: Female
  Weight: 64.5 kg

DRUGS (21)
  1. GASMOTIN [Concomitant]
     Active Substance: MOSAPRIDE CITRATE
     Route: 048
  2. MAGNESIUM OXIDE. [Concomitant]
     Active Substance: MAGNESIUM OXIDE
     Route: 048
  3. NASONEX [Concomitant]
     Active Substance: MOMETASONE FUROATE
     Route: 045
  4. MYSER [Concomitant]
     Active Substance: DIFLUPREDNATE
     Route: 061
  5. KERATINAMIN [Concomitant]
     Active Substance: UREA
     Indication: DRUG TOXICITY PROPHYLAXIS
     Route: 061
  6. VEGETAMIN [Suspect]
     Active Substance: CHLORPROMAZINE HYDROCHLORIDE\PHENOBARBITAL\PROMETHAZINE HYDROCHLORIDE
     Route: 048
  7. ALFAROL [Concomitant]
     Active Substance: ALFACALCIDOL
     Dosage: 1 ?G
     Route: 048
     Dates: start: 200505
  8. NEXAVAR [Suspect]
     Active Substance: SORAFENIB
     Indication: PAPILLARY THYROID CANCER
     Dosage: 400 MG, BID
     Route: 048
     Dates: start: 20140909, end: 20140923
  9. AMOBAN [Suspect]
     Active Substance: ZOPICLONE
     Route: 048
  10. DOGMATYL [Suspect]
     Active Substance: SULPIRIDE
     Route: 048
  11. HALOSTEN [Suspect]
     Active Substance: HALOPERIDOL
     Route: 048
  12. ZYPREXA [Suspect]
     Active Substance: OLANZAPINE
  13. ULCERLMIN [Concomitant]
     Active Substance: SUCRALFATE
     Route: 048
  14. HIRUDOID [Concomitant]
     Active Substance: GLYCOSAMINOGLYCANS
     Indication: DRUG TOXICITY PROPHYLAXIS
     Dosage: UNK, QS
     Route: 061
  15. PURSENNID [Concomitant]
     Active Substance: SENNOSIDES A AND B
     Route: 048
  16. COLONEL [Concomitant]
     Active Substance: CALCIUM POLYCARBOPHIL
     Route: 048
  17. LODOPIN [Suspect]
     Active Substance: ZOTEPINE
     Route: 048
  18. WYPAX [Suspect]
     Active Substance: LORAZEPAM
     Route: 048
  19. THYRADIN [Concomitant]
     Active Substance: LEVOTHYROXINE
     Indication: PAPILLARY THYROID CANCER
     Dosage: 150 ?G
     Route: 048
     Dates: start: 200505
  20. LOPEMIN [Concomitant]
     Active Substance: LOPERAMIDE HYDROCHLORIDE
     Route: 048
  21. RISPERDAL [Suspect]
     Active Substance: RISPERIDONE

REACTIONS (7)
  - Altered state of consciousness [Recovering/Resolving]
  - Haematemesis [Recovering/Resolving]
  - Posterior reversible encephalopathy syndrome [Recovered/Resolved with Sequelae]
  - Palmar-plantar erythrodysaesthesia syndrome [Recovered/Resolved]
  - Clonic convulsion [Recovering/Resolving]
  - Alopecia [Recovering/Resolving]
  - Otorrhoea [Recovering/Resolving]

NARRATIVE: CASE EVENT DATE: 20140916
